FAERS Safety Report 5236706-4 (Version None)
Quarter: 2007Q1

REPORT INFORMATION
  Report Type: 
  Country: None (occurrence: None)
  Receive Date: 20070209
  Receipt Date: 20070125
  Transmission Date: 20070707
  Serious: Yes (Hospitalization)
  Sender: FDA-Public Use
  Company Number: S07-FRA-00554-01

PATIENT
  Age: 85 Year
  Sex: Female

DRUGS (6)
  1. EBIXA (MEMANTINE) [Suspect]
     Dosage: 5 MG BID PO
     Route: 048
     Dates: start: 20050414, end: 20061215
  2. ZYPREXA [Suspect]
     Dosage: 5 MG QD PO
     Route: 048
     Dates: start: 20060707, end: 20061217
  3. ATHYMIL (MIANSERIN HYDROCHLORIDE) [Concomitant]
  4. LEXOMIL (BROMAZEPAM) [Concomitant]
  5. LORAZEPAM [Concomitant]
  6. PARACETAMOL [Concomitant]

REACTIONS (5)
  - BLOOD CULTURE POSITIVE [None]
  - ESCHERICHIA INFECTION [None]
  - PYELONEPHRITIS [None]
  - RENAL FAILURE ACUTE [None]
  - RHABDOMYOLYSIS [None]
